FAERS Safety Report 5690273-X (Version None)
Quarter: 2008Q2

REPORT INFORMATION
  Report Type: 
  Country: None (occurrence: None)
  Receive Date: 20080401
  Receipt Date: 20080319
  Transmission Date: 20081010
  Serious: Yes (Life-Threatening, Hospitalization)
  Sender: FDA-Public Use
  Company Number: DE-ELI_LILLY_AND_COMPANY-DE200803002561

PATIENT
  Sex: Male
  Weight: 108 kg

DRUGS (10)
  1. ALIMTA [Suspect]
     Indication: PLEURAL MESOTHELIOMA
     Dosage: UNK, UNKNOWN
     Dates: start: 20071001, end: 20080201
  2. FOLIC ACID [Concomitant]
     Indication: PROPHYLAXIS
     Dosage: UNK, UNKNOWN
  3. VITAMIN B-12 [Concomitant]
     Indication: PROPHYLAXIS
     Dosage: UNK, UNKNOWN
  4. DEXAMETHASONE TAB [Concomitant]
     Indication: PROPHYLAXIS
     Dosage: UNK, UNKNOWN
  5. BELOC ZOK [Concomitant]
     Dosage: 47.5 MG, UNKNOWN
  6. ATACAND [Concomitant]
     Dosage: 16 MG, UNKNOWN
  7. DECORTIN-H [Concomitant]
     Dosage: 10 MG, UNKNOWN
  8. SPIRIVA [Concomitant]
     Dosage: UNK, UNKNOWN
  9. ACC                                /00082801/ [Concomitant]
     Dosage: 600 MG, UNKNOWN
  10. OMEPRAZOLE [Concomitant]
     Dosage: UNK, UNKNOWN

REACTIONS (3)
  - DEEP VEIN THROMBOSIS [None]
  - PERIPHERAL EMBOLISM [None]
  - PULMONARY EMBOLISM [None]
